FAERS Safety Report 4297239-5 (Version None)
Quarter: 2004Q1

REPORT INFORMATION
  Report Type: 
  Country: None (occurrence: None)
  Receive Date: 20040213
  Receipt Date: 20040130
  Transmission Date: 20041129
  Serious: Yes (Death)
  Sender: FDA-Public Use
  Company Number: 200400691

PATIENT
  Age: 18 Year
  Sex: Male

DRUGS (3)
  1. BOTOX [Suspect]
     Indication: MUSCLE SPASTICITY
     Dosage: NI
     Dates: end: 20031201
  2. VAGUS NERVE STIMULATOR [Concomitant]
  3. MULTIPLE ANTI-CONVULSION MEDICATIONS [Concomitant]

REACTIONS (2)
  - STATUS EPILEPTICUS [None]
  - SUDDEN DEATH [None]
